FAERS Safety Report 19029324 (Version 3)
Quarter: 2021Q3

REPORT INFORMATION
  Report Type: Spontaneous
  Country: US (occurrence: US)
  Receive Date: 20210318
  Receipt Date: 20210903
  Transmission Date: 20211014
  Serious: Yes (Death, Life-Threatening, Hospitalization, Other)
  Sender: FDA-Public Use
  Company Number: US-ORGANON-O2103USA001558

PATIENT
  Sex: Male

DRUGS (2)
  1. SINEMET [Suspect]
     Active Substance: CARBIDOPA\LEVODOPA
     Dosage: HEAVY DOSES/3 TABLETS FOUR TIMES A DAY
     Route: 048
     Dates: start: 2020
  2. SINEMET [Suspect]
     Active Substance: CARBIDOPA\LEVODOPA
     Indication: PARKINSON^S DISEASE
     Dosage: UNK
     Route: 048

REACTIONS (16)
  - Dehydration [Unknown]
  - Death [Fatal]
  - Blood electrolytes abnormal [Unknown]
  - Malnutrition [Unknown]
  - Nausea [Unknown]
  - Weight decreased [Unknown]
  - Peripheral swelling [Unknown]
  - Constipation [Unknown]
  - Asthenia [Unknown]
  - Abdominal pain [Unknown]
  - Emotional distress [Unknown]
  - Atrial fibrillation [Unknown]
  - Transfusion [Unknown]
  - Feeding disorder [Unknown]
  - Cardiac dysfunction [Unknown]
  - Dyspnoea [Unknown]

NARRATIVE: CASE EVENT DATE: 2020
